FAERS Safety Report 8340416-4 (Version None)
Quarter: 2012Q2

REPORT INFORMATION
  Report Type: 
  Country: None (occurrence: None)
  Receive Date: 20120507
  Receipt Date: 20120507
  Transmission Date: 20120825
  Serious: No
  Sender: FDA-Public Use
  Company Number: None

PATIENT
  Age: 28 Year
  Sex: Female
  Weight: 62.142 kg

DRUGS (1)
  1. TERAZOL 7 [Suspect]
     Indication: FUNGAL INFECTION
     Dosage: |DOSAGETEXT: ONE APPLICATER FOR 7 NIGHTS||STRENGTH: 0.4%||FREQ: ONCE AT NIGHT||ROUTE: VAGINAL|
     Route: 067
     Dates: start: 20120409, end: 20120415

REACTIONS (1)
  - BURNING SENSATION [None]
